FAERS Safety Report 21132486 (Version 1)
Quarter: 2022Q3

REPORT INFORMATION
  Report Type: Spontaneous
  Country: US (occurrence: None)
  Receive Date: 20220726
  Receipt Date: 20220726
  Transmission Date: 20221027
  Serious: No
  Sender: FDA-Public Use
  Company Number: None

PATIENT
  Age: 63 Year
  Sex: Female
  Weight: 74.25 kg

DRUGS (1)
  1. TRAZIMERA [Suspect]
     Active Substance: TRASTUZUMAB-QYYP
     Indication: Breast cancer metastatic
     Dosage: OTHER FREQUENCY : EVERY 3 WEEKS;?
     Route: 042
     Dates: start: 20220721

REACTIONS (4)
  - Dizziness [None]
  - Pyrexia [None]
  - Chills [None]
  - Vomiting [None]

NARRATIVE: CASE EVENT DATE: 20220721
